FAERS Safety Report 4914418-1 (Version None)
Quarter: 2006Q1

REPORT INFORMATION
  Report Type: 
  Country: None (occurrence: None)
  Receive Date: 20060113
  Receipt Date: 20051114
  Transmission Date: 20060701
  Serious: No
  Sender: FDA-Public Use
  Company Number: 2005SP003964

PATIENT
  Age: 60 Year
  Sex: Female
  Weight: 61.2356 kg

DRUGS (4)
  1. LUNESTA [Suspect]
     Indication: INITIAL INSOMNIA
     Dosage: 3 MG;HS;ORAL
     Route: 048
     Dates: start: 20051110, end: 20051110
  2. ACTONEL [Concomitant]
  3. ATENOLOL [Concomitant]
  4. ZOCOR [Concomitant]

REACTIONS (1)
  - DYSGEUSIA [None]
